FAERS Safety Report 6968169-2 (Version None)
Quarter: 2010Q3

REPORT INFORMATION
  Report Type: 
  Country: None (occurrence: None)
  Receive Date: 20100907
  Receipt Date: 20100826
  Transmission Date: 20110219
  Serious: Yes (Hospitalization)
  Sender: FDA-Public Use
  Company Number: JP-ELI_LILLY_AND_COMPANY-JP201008003969

PATIENT
  Sex: Male
  Weight: 68.9 kg

DRUGS (5)
  1. GEMCITABINE HCL [Suspect]
     Indication: BILE DUCT CANCER
     Dosage: 1800 MG, OTHER
     Route: 042
     Dates: start: 20100714, end: 20100728
  2. GEMCITABINE HCL [Suspect]
     Dosage: 1800 MG, OTHER
     Route: 042
     Dates: start: 20100816, end: 20100816
  3. OTS102 [Suspect]
     Indication: BILE DUCT CANCER
     Dosage: 2 MG, OTHER
     Route: 042
     Dates: start: 20100714, end: 20100728
  4. TOWARAT L [Concomitant]
     Indication: HYPERTENSION
     Dosage: 20 MG, UNKNOWN
     Route: 048
     Dates: start: 19960101
  5. URDESTON [Concomitant]
     Indication: HEPATITIS C
     Dosage: 100 MG, UNK
     Route: 048
     Dates: start: 19960101

REACTIONS (6)
  - DECREASED APPETITE [None]
  - FATIGUE [None]
  - LACUNAR INFARCTION [None]
  - MEMORY IMPAIRMENT [None]
  - PLATELET COUNT DECREASED [None]
  - TUMOUR THROMBOSIS [None]
